FAERS Safety Report 4383371-4 (Version None)
Quarter: 2004Q2

REPORT INFORMATION
  Report Type: 
  Country: None (occurrence: None)
  Receive Date: 20040618
  Receipt Date: 20040611
  Transmission Date: 20050107
  Serious: Yes (Hospitalization, Other)
  Sender: FDA-Public Use
  Company Number: KII-2004-001121

PATIENT
  Age: 35 Year
  Sex: Female

DRUGS (1)
  1. MORPHINE SULFATE [Suspect]
     Dosage: ORAL
     Route: 048

REACTIONS (6)
  - COMA [None]
  - DRUG EFFECT DECREASED [None]
  - HYPOXIA [None]
  - MEDICATION ERROR [None]
  - NEUROLOGICAL EXAMINATION ABNORMAL [None]
  - OVERDOSE [None]
